FAERS Safety Report 6243299-1 (Version None)
Quarter: 2009Q2

REPORT INFORMATION
  Report Type: 
  Country: None (occurrence: None)
  Receive Date: 20090622
  Receipt Date: 20090609
  Transmission Date: 20091009
  Serious: Yes (Death, Hospitalization)
  Sender: FDA-Public Use
  Company Number: 2009-02352

PATIENT
  Sex: Male

DRUGS (1)
  1. VELCADE [Suspect]
     Indication: MULTIPLE MYELOMA
     Dosage: 1.3 MG/M2, INTRAVENOUS
     Route: 042
     Dates: start: 20090505, end: 20090508

REACTIONS (5)
  - DISEASE PROGRESSION [None]
  - LUNG INFILTRATION [None]
  - MULTIPLE MYELOMA [None]
  - PLEURAL EFFUSION [None]
  - PNEUMONIA [None]
